FAERS Safety Report 18678505 (Version 2)
Quarter: 2021Q1

REPORT INFORMATION
  Report Type: Spontaneous
  Country: US (occurrence: US)
  Receive Date: 20201230
  Receipt Date: 20210201
  Transmission Date: 20210419
  Serious: No
  Sender: FDA-Public Use
  Company Number: US-JNJFOC-20201246856

PATIENT
  Age: 54 Year
  Sex: Female
  Weight: 89.89 kg

DRUGS (1)
  1. SIMPONI [Suspect]
     Active Substance: GOLIMUMAB
     Indication: RHEUMATOID ARTHRITIS
     Route: 058

REACTIONS (3)
  - Device malfunction [Unknown]
  - Product dose omission issue [Unknown]
  - Product storage error [Unknown]

NARRATIVE: CASE EVENT DATE: 20201218
